FAERS Safety Report 24722832 (Version 1)
Quarter: 2024Q4

REPORT INFORMATION
  Report Type: Spontaneous
  Country: GR (occurrence: GR)
  Receive Date: 20241211
  Receipt Date: 20241211
  Transmission Date: 20250115
  Serious: Yes (Other)
  Sender: GLAXOSMITHKLINE
  Company Number: GR-GSKCCFEMEA-Case-02112318_AE-90331

PATIENT

DRUGS (1)
  1. VALTREX [Suspect]
     Active Substance: VALACYCLOVIR HYDROCHLORIDE
     Indication: Herpes virus infection
     Dosage: 1000 MG
     Dates: start: 20241112

REACTIONS (2)
  - Thrombosis [Unknown]
  - Gait inability [Unknown]

NARRATIVE: CASE EVENT DATE: 20241113
